FAERS Safety Report 8310729-0 (Version None)
Quarter: 2012Q2

REPORT INFORMATION
  Report Type: 
  Country: None (occurrence: None)
  Receive Date: 20120425
  Receipt Date: 20120419
  Transmission Date: 20120825
  Serious: Yes (Life-Threatening, Hospitalization, Other)
  Sender: FDA-Public Use
  Company Number: US-CELGENEUS-163-21880-12040028

PATIENT
  Sex: Male

DRUGS (14)
  1. PRADAXA [Concomitant]
     Dosage: 150 MILLIGRAM
     Route: 065
  2. VIT D3 [Concomitant]
     Dosage: 50 MILLIGRAM
     Route: 065
  3. SENOKOT [Concomitant]
     Dosage: 8.6 MILLIGRAM
     Route: 065
  4. PRILOSEC [Concomitant]
     Dosage: 20 MILLIGRAM
     Route: 065
  5. REVLIMID [Suspect]
     Indication: MULTIPLE MYELOMA
     Dosage: 25 MILLIGRAM
     Route: 048
     Dates: start: 20111215
  6. AMBIEN [Concomitant]
     Dosage: 5 MILLIGRAM
     Route: 048
  7. REMERON [Concomitant]
     Dosage: 15 MILLIGRAM
     Route: 048
  8. LIPITOR [Concomitant]
     Dosage: 100 MILLIGRAM
     Route: 048
  9. REVLIMID [Suspect]
     Dosage: 15 MILLIGRAM
     Route: 048
     Dates: start: 20120405
  10. AMIODARONE HCL [Concomitant]
     Dosage: 200 MILLIGRAM
     Route: 065
  11. DEXAMETHASONE [Concomitant]
     Dosage: 40 MILLIGRAM
     Route: 065
  12. LASIX [Concomitant]
     Dosage: 20 MILLIGRAM
     Route: 065
  13. ALLOPURINOL [Concomitant]
     Dosage: 200 MILLIGRAM
     Route: 065
  14. SINGULAIR [Concomitant]
     Dosage: 10 MILLIGRAM
     Route: 048

REACTIONS (3)
  - NEUTROPENIA [None]
  - PNEUMONIA [None]
  - SEPSIS [None]
